FAERS Safety Report 13089234 (Version 4)
Quarter: 2017Q1

REPORT INFORMATION
  Report Type: Report from Study
  Country: US (occurrence: US)
  Receive Date: 20170105
  Receipt Date: 20170201
  Transmission Date: 20170428
  Serious: Yes (Other)
  Sender: FDA-Public Use
  Company Number: US-PFIZER INC-2016587488

PATIENT
  Age: 59 Year
  Sex: Female

DRUGS (1)
  1. IBRANCE [Suspect]
     Active Substance: PALBOCICLIB
     Indication: BREAST CANCER METASTATIC
     Dosage: 125 MG, CYCLIC (ONCE DAILY FOR 21 DAYS IN A ROW, FOLLOWED BY 7 DAYS OFF EVERY 28 DAYS)
     Route: 048
     Dates: start: 20161206, end: 20161221

REACTIONS (14)
  - Fatigue [Recovering/Resolving]
  - Neoplasm progression [Unknown]
  - Asthenia [Recovering/Resolving]
  - Bone pain [Not Recovered/Not Resolved]
  - Decreased appetite [Recovering/Resolving]
  - Condition aggravated [Not Recovered/Not Resolved]
  - Thrombocytopenia [Unknown]
  - Cough [Recovering/Resolving]
  - Malaise [Unknown]
  - Bone marrow failure [Unknown]
  - Dyspnoea [Recovering/Resolving]
  - Neutropenia [Not Recovered/Not Resolved]
  - White blood cell count decreased [Recovering/Resolving]
  - Aphonia [Unknown]

NARRATIVE: CASE EVENT DATE: 20161220
